FAERS Safety Report 10925875 (Version 2)
Quarter: 2015Q1

REPORT INFORMATION
  Report Type: Spontaneous
  Country: JP (occurrence: JP)
  Receive Date: 20150318
  Receipt Date: 20150324
  Transmission Date: 20150721
  Serious: Yes (Other)
  Sender: FDA-Public Use
  Company Number: JP-009507513-1502JPN011348

PATIENT
  Age: 96 Year
  Sex: Female

DRUGS (15)
  1. RIVOTRIL [Concomitant]
     Active Substance: CLONAZEPAM
     Dosage: DAILY DOSAGE UNKNOWN
  2. HERBAL NOS [Concomitant]
     Active Substance: HERBALS
     Dosage: DAILY DOSAGE UNKNOWN
  3. YODEL S [Concomitant]
     Active Substance: SENNA LEAF\SENNOSIDES\SENNOSIDES A AND B
     Dosage: DAILY DOSE UNKNOWN
  4. AM [Concomitant]
     Dosage: DAILY DOSAGE UNKNOWN
     Route: 048
  5. PREDONINE [Concomitant]
     Active Substance: PREDNISOLONE\PREDNISOLONE ACETATE\PREDNISOLONE SODIUM SUCCINATE
     Dosage: DAILY DOSAGE UNKNOWN
  6. PARIET [Concomitant]
     Active Substance: RABEPRAZOLE SODIUM
     Dosage: DAILY DOSAGE UNKNOWN
  7. TIENAM FOR INTRAVENOUS DRIP INFUSION [Suspect]
     Active Substance: CILASTATIN SODIUM\IMIPENEM
     Dosage: 1 ML, ONCE
     Route: 041
     Dates: start: 20150223, end: 20150223
  8. OPALMON [Concomitant]
     Active Substance: LIMAPROST
     Dosage: DAILY DOSAGE UNKNOWN
  9. ELIQUIS [Concomitant]
     Active Substance: APIXABAN
     Dosage: DAILY DOSAGE UNKNOWN
  10. DEPAS [Concomitant]
     Active Substance: ETIZOLAM
     Dosage: DAILY DOSAGE UNKNOWN
  11. ADALAT [Concomitant]
     Active Substance: NIFEDIPINE
     Dosage: DAILY DOSE UNKNOWN
  12. GASMOTIN [Concomitant]
     Active Substance: MOSAPRIDE CITRATE
     Dosage: DAILY DOSAGE UNKNOWN
  13. MAGMITT [Concomitant]
     Active Substance: MAGNESIUM OXIDE
     Dosage: DAILY DOSAGE UNKNOWN
  14. MOHRUS [Concomitant]
     Active Substance: KETOPROFEN
     Dosage: FORMULATION: TAP, DAILY DOSAGE UNKNOWN
     Route: 061
  15. TIENAM FOR INTRAVENOUS DRIP INFUSION [Suspect]
     Active Substance: CILASTATIN SODIUM\IMIPENEM
     Indication: NASOPHARYNGITIS
     Dosage: 1 ML, QD
     Route: 041
     Dates: start: 20150219, end: 20150221

REACTIONS (2)
  - Drug eruption [Recovered/Resolved]
  - Diarrhoea [Unknown]

NARRATIVE: CASE EVENT DATE: 20150223
